FAERS Safety Report 16239247 (Version 1)
Quarter: 2019Q2

REPORT INFORMATION
  Report Type: Report from Study
  Country: US (occurrence: US)
  Receive Date: 20190425
  Receipt Date: 20190425
  Transmission Date: 20190711
  Serious: Yes (Hospitalization, Other)
  Sender: FDA-Public Use
  Company Number: US-GILEAD-2019-0403920

PATIENT
  Age: 30 Year
  Sex: Male

DRUGS (8)
  1. AZTREONAM LYSINE [Suspect]
     Active Substance: AZTREONAM LYSINE
     Indication: CYSTIC FIBROSIS LUNG
     Dosage: 75 MG, Q8H FOR 28 DAYS ON AND THEN TAKE 28 DAYS OFF
     Dates: start: 20181213
  2. PREDNISONE. [Concomitant]
     Active Substance: PREDNISONE
  3. PULMOZYME [Concomitant]
     Active Substance: DORNASE ALFA
  4. AZITHROMYCIN ANHYDROUS. [Concomitant]
     Active Substance: AZITHROMYCIN ANHYDROUS
  5. PROTONIX [OMEPRAZOLE] [Concomitant]
     Active Substance: OMEPRAZOLE
  6. MEPHYTON [Concomitant]
     Active Substance: PHYTONADIONE
  7. IPRATROPIUM [Concomitant]
     Active Substance: IPRATROPIUM
  8. PROVENTIL [Concomitant]
     Active Substance: ALBUTEROL

REACTIONS (1)
  - Cystic fibrosis respiratory infection suppression [Not Recovered/Not Resolved]

NARRATIVE: CASE EVENT DATE: 201903
